FAERS Safety Report 5968396-7 (Version None)
Quarter: 2008Q4

REPORT INFORMATION
  Report Type: 
  Country: None (occurrence: None)
  Receive Date: 20081121
  Receipt Date: 20081121
  Transmission Date: 20090506
  Serious: Yes (Other)
  Sender: FDA-Public Use
  Company Number: None

PATIENT
  Sex: Female
  Weight: 87.5442 kg

DRUGS (1)
  1. ABILIFY [Suspect]
     Indication: BIPOLAR I DISORDER
     Dosage: 15MG  DAILY PO
     Route: 048

REACTIONS (1)
  - CHOKING SENSATION [None]
